FAERS Safety Report 6046399-4 (Version None)
Quarter: 2009Q1

REPORT INFORMATION
  Report Type: 
  Country: None (occurrence: None)
  Receive Date: 20090121
  Receipt Date: 20090121
  Transmission Date: 20090719
  Serious: Yes (Hospitalization)
  Sender: FDA-Public Use
  Company Number: None

PATIENT
  Age: 50 Year
  Sex: Male

DRUGS (1)
  1. CLOPIDOGREL [Suspect]
     Indication: POSTOPERATIVE CARE
     Dosage: 75 MG EVERYDAY PO
     Route: 048
     Dates: start: 20081105, end: 20090111

REACTIONS (6)
  - FALL [None]
  - GASTRIC HAEMORRHAGE [None]
  - GASTRIC VARICES HAEMORRHAGE [None]
  - HYPOTENSION [None]
  - INTERNATIONAL NORMALISED RATIO INCREASED [None]
  - SPLENIC VEIN THROMBOSIS [None]
